FAERS Safety Report 19237947 (Version 2)
Quarter: 2022Q2

REPORT INFORMATION
  Report Type: Spontaneous
  Country: US (occurrence: US)
  Receive Date: 20210510
  Receipt Date: 20220412
  Transmission Date: 20220721
  Serious: Yes (Other)
  Sender: FDA-Public Use
  Company Number: US-PFIZER INC-2021469695

PATIENT
  Age: 70 Year
  Sex: Female

DRUGS (6)
  1. CELEBREX [Suspect]
     Active Substance: CELECOXIB
     Indication: Inflammation
     Dosage: 800 MG
  2. CELEBREX [Suspect]
     Active Substance: CELECOXIB
     Indication: Pain
     Dosage: 400 MG
  3. CELEBREX [Suspect]
     Active Substance: CELECOXIB
     Indication: Joint swelling
     Dosage: DROP THE DOSAGE
     Dates: start: 202204
  4. AMBIEN [Concomitant]
     Active Substance: ZOLPIDEM TARTRATE
     Indication: Sleep disorder
     Dosage: UNK
  5. SOMA [CAFFEINE;CHLORZOXAZONE;PARACETAMOL;THIAMINE DISULFIDE] [Concomitant]
     Dosage: UNK
  6. TRAMADOL HYDROCHLORIDE [Concomitant]
     Active Substance: TRAMADOL HYDROCHLORIDE
     Dosage: UNK
     Dates: start: 1995

REACTIONS (10)
  - Drug dependence [Unknown]
  - Myocardial infarction [Unknown]
  - Cerebrovascular accident [Unknown]
  - Dyspnoea [Unknown]
  - Renal disorder [Unknown]
  - Product dose omission issue [Unknown]
  - Off label use [Unknown]
  - Off label use [Unknown]
  - Product use issue [Unknown]
  - Rash [Unknown]
